FAERS Safety Report 25192384 (Version 1)
Quarter: 2025Q2

REPORT INFORMATION
  Report Type: Other
  Country: CN (occurrence: CN)
  Receive Date: 20250414
  Receipt Date: 20250414
  Transmission Date: 20250716
  Serious: Yes (Life-Threatening, Other)
  Sender: LYNE LABORATORIES
  Company Number: CN-Lyne Laboratories Inc.-2174822

PATIENT
  Age: 21 Year
  Sex: Male

DRUGS (9)
  1. DEXAMETHASONE [Suspect]
     Active Substance: DEXAMETHASONE
     Indication: Central nervous system leukaemia
     Dates: start: 201904
  2. CYCLOPHOSPHAMIDE [Suspect]
     Active Substance: CYCLOPHOSPHAMIDE
     Dates: start: 201904
  3. LENALIDOMIDE [Concomitant]
     Active Substance: LENALIDOMIDE
  4. EPIRUBICIN HYDROCHLORIDE [Suspect]
     Active Substance: EPIRUBICIN HYDROCHLORIDE
     Dates: start: 201904
  5. VINDESINE [Suspect]
     Active Substance: VINDESINE
     Dates: start: 201904
  6. FLUDARABINE [Suspect]
     Active Substance: FLUDARABINE PHOSPHATE
  7. METHOTREXATE [Suspect]
     Active Substance: METHOTREXATE
  8. MERCAPTOPURINE [Suspect]
     Active Substance: MERCAPTOPURINE
  9. CYTARABINE [Suspect]
     Active Substance: CYTARABINE

REACTIONS (3)
  - Myelosuppression [Unknown]
  - Incorrect route of product administration [Unknown]
  - Infection [Unknown]
